FAERS Safety Report 21889059 (Version 2)
Quarter: 2023Q1

REPORT INFORMATION
  Report Type: Spontaneous
  Country: US (occurrence: US)
  Receive Date: 20230120
  Receipt Date: 20230130
  Transmission Date: 20230418
  Serious: No
  Sender: FDA-Public Use
  Company Number: US-SANOFI-01451533

PATIENT
  Age: 75 Year
  Sex: Male

DRUGS (1)
  1. SOLIQUA 100/33 [Suspect]
     Active Substance: INSULIN GLARGINE\LIXISENATIDE
     Dosage: 28 IU, QD
     Route: 065
     Dates: start: 2021

REACTIONS (3)
  - Renal disorder [Unknown]
  - Cardiovascular disorder [Unknown]
  - Blood glucose decreased [Unknown]
